FAERS Safety Report 8996942 (Version 2)
Quarter: 2013Q1

REPORT INFORMATION
  Report Type: Spontaneous
  Country: JP (occurrence: None)
  Receive Date: 20121220
  Receipt Date: 20130131
  Transmission Date: 20140127
  Serious: Yes (Hospitalization)
  Sender: FDA-Public Use
  Company Number: TCI2012A07132

PATIENT
  Age: 82 Year
  Sex: 0

DRUGS (10)
  1. TAKEPRON [Suspect]
     Indication: PROPHYLAXIS AGAINST GASTROINTESTINAL ULCER
     Dosage: (15 MG, 1 IN 1 D)
     Route: 048
     Dates: start: 20111003
  2. BAYASPIRIN (ACETYLSALICYLIC ACID) [Concomitant]
  3. TSUMURA MASHI-NIN-GAN(UNSPECIFIED HERBAL) [Concomitant]
  4. SERMION(NICERGOLINE) [Concomitant]
  5. SELBEX(TEPRENONE) [Concomitant]
  6. GLIMICRON(GLICLAZIDE) [Concomitant]
  7. MAGMITT(MAGNESIUM OXIDE) [Concomitant]
  8. NITOROL R(ISOSORBIDE DINITRATE) [Concomitant]
  9. OPALMON(LIMAPROST) [Concomitant]
  10. DIOVAN(VALSARTAN) [Concomitant]

REACTIONS (3)
  - Gait disturbance [None]
  - Dysarthria [None]
  - Cerebral infarction [None]
